FAERS Safety Report 7138518-3 (Version None)
Quarter: 2010Q4

REPORT INFORMATION
  Report Type: 
  Country: None (occurrence: None)
  Receive Date: 20101201
  Receipt Date: 20101201
  Transmission Date: 20110411
  Serious: Yes (Hospitalization)
  Sender: FDA-Public Use
  Company Number: None

PATIENT
  Sex: Female
  Weight: 72.5755 kg

DRUGS (1)
  1. TINDAMAX [Suspect]
     Indication: VAGINITIS BACTERIAL
     Dosage: 500MG X2 ONCE A DAY PO (TOOK 1 DOSE ONLY)
     Route: 048

REACTIONS (3)
  - HYPERSENSITIVITY [None]
  - TREMOR [None]
  - VISUAL IMPAIRMENT [None]
